FAERS Safety Report 23081560 (Version 1)
Quarter: 2023Q4

REPORT INFORMATION
  Report Type: Spontaneous
  Country: ZA (occurrence: ZA)
  Receive Date: 20231019
  Receipt Date: 20231019
  Transmission Date: 20240109
  Serious: Yes (Hospitalization)
  Sender: FDA-Public Use
  Company Number: ZA-ABBOTT-2023A-1371186

PATIENT
  Age: 60 Year
  Sex: Male

DRUGS (8)
  1. FENOFIBRATE [Suspect]
     Active Substance: FENOFIBRATE
     Indication: Blood cholesterol abnormal
     Dosage: DOSE (MG) AND INTERVAL : 200 MG TAKE ONE TABLET AT NIGHT
     Route: 048
  2. BUDESONIDE [Concomitant]
     Active Substance: BUDESONIDE
     Indication: Product used for unknown indication
     Dosage: DOSE (MG) AND INTERVAL :160/4.5 MCG TAKE ONE PUFF 8- 12 HOURLY; SYMBICORD 60 DOSE
     Route: 048
  3. Lipogen [Concomitant]
     Indication: Blood cholesterol abnormal
     Dosage: DOSE (MG) AND INTERVAL :10 MG TAKE ONE TABLET AT NIGHT
     Route: 048
  4. PERINDOPRIL ARGININE [Concomitant]
     Active Substance: PERINDOPRIL ARGININE
     Indication: Hypertension
     Dosage: DOSE (MG) AND INTERVAL :5/1.25 MG TAKE ONE TABLET IN THE MORNING ; PREXUM 5 PLUS
     Route: 048
  5. ASPIRIN [Concomitant]
     Active Substance: ASPIRIN
     Indication: Anticoagulant therapy
     Dosage: DOSE (MG) AND INTERVAL : 100 MG TAKE ONE TABLET DAILY
     Route: 048
  6. GLUCOPHAGE XR [Concomitant]
     Active Substance: METFORMIN HYDROCHLORIDE
     Indication: Diabetes mellitus
     Dosage: DOSE (MG) AND INTERVAL : 1000 MG TAKE TWO TABLETS AT NIGHT AFTER SUPPER
     Route: 048
  7. OMEPRAZOLE [Concomitant]
     Active Substance: OMEPRAZOLE
     Indication: Ulcer
     Dosage: DOSE (MG) AND INTERVAL :20 MG TAKE ONE CAPSULE BEFORE BREAKAST
     Route: 048
  8. VILDAGLIPTIN [Concomitant]
     Active Substance: VILDAGLIPTIN
     Indication: Diabetes mellitus
     Dosage: DOSE (MG) AND INTERVAL : 50 MG TAKE ONE TABLET DAILY (MORNING)
     Route: 048

REACTIONS (1)
  - Rotator cuff repair [Recovering/Resolving]
